FAERS Safety Report 8337949-3 (Version None)
Quarter: 2012Q2

REPORT INFORMATION
  Report Type: 
  Country: None (occurrence: None)
  Receive Date: 20120504
  Receipt Date: 20120424
  Transmission Date: 20120825
  Serious: Yes (Hospitalization, Other)
  Sender: FDA-Public Use
  Company Number: US-JNJFOC-20120411680

PATIENT
  Sex: Female
  Weight: 112.04 kg

DRUGS (3)
  1. ORTHO TRI-CYCLEN LO [Suspect]
     Indication: MENSTRUATION IRREGULAR
     Route: 048
     Dates: start: 20020602, end: 20020601
  2. ORTHO TRI-CYCLEN LO [Suspect]
     Route: 048
     Dates: start: 20020601, end: 20020610
  3. METFORMIN HCL [Concomitant]
     Indication: GLUCOSE TOLERANCE IMPAIRED
     Route: 048
     Dates: start: 20020601

REACTIONS (5)
  - HAEMORRHAGE [None]
  - OFF LABEL USE [None]
  - UTERINE ENLARGEMENT [None]
  - OVARIAN ENLARGEMENT [None]
  - INAPPROPRIATE SCHEDULE OF DRUG ADMINISTRATION [None]
